FAERS Safety Report 5631070-0 (Version None)
Quarter: 2008Q1

REPORT INFORMATION
  Report Type: 
  Country: None (occurrence: None)
  Receive Date: 20080131
  Receipt Date: 20071219
  Transmission Date: 20080703
  Serious: No
  Sender: FDA-Public Use
  Company Number: 163-21880-07111076

PATIENT
  Age: 57 Year
  Sex: Male

DRUGS (2)
  1. REVLIMID [Suspect]
     Indication: MULTIPLE MYELOMA
     Dosage: 20, 25 MG 2 IN 1 D, ORAL
     Route: 048
     Dates: start: 20070920, end: 20071101
  2. REVLIMID [Suspect]
     Indication: MULTIPLE MYELOMA
     Dosage: 20, 25 MG 2 IN 1 D, ORAL
     Route: 048
     Dates: start: 20071101

REACTIONS (2)
  - HYPOAESTHESIA [None]
  - PARAESTHESIA [None]
